FAERS Safety Report 12437188 (Version 1)
Quarter: 2016Q2

REPORT INFORMATION
  Report Type: Spontaneous
  Country: US (occurrence: US)
  Receive Date: 20160606
  Receipt Date: 20160606
  Transmission Date: 20160815
  Serious: Yes (Other)
  Sender: FDA-Public Use
  Company Number: US-AMGEN-USASP2016010922

PATIENT
  Sex: Female

DRUGS (1)
  1. PROLIA [Suspect]
     Active Substance: DENOSUMAB
     Indication: OSTEOPOROSIS POSTMENOPAUSAL
     Dosage: 60 MG, Q6MO
     Route: 065

REACTIONS (6)
  - Impaired healing [Not Recovered/Not Resolved]
  - Limb injury [Unknown]
  - Pyoderma gangrenosum [Unknown]
  - Cellulitis [Not Recovered/Not Resolved]
  - Haematoma [Unknown]
  - Contusion [Unknown]
